FAERS Safety Report 14184444 (Version 1)
Quarter: 2017Q4

REPORT INFORMATION
  Report Type: Spontaneous
  Country: GB (occurrence: GB)
  Receive Date: 20171113
  Receipt Date: 20171113
  Transmission Date: 20180321
  Serious: Yes (Death, Hospitalization, Other)
  Sender: FDA-Public Use
  Company Number: GB-MYLANLABS-2017M1070091

PATIENT
  Age: 81 Year
  Sex: Male
  Weight: 59 kg

DRUGS (18)
  1. TRAZODONE [Suspect]
     Active Substance: TRAZODONE HYDROCHLORIDE
     Indication: DELIRIUM
     Dosage: 25 MG, UNK
     Route: 048
     Dates: start: 201705
  2. FOLIC ACID. [Concomitant]
     Active Substance: FOLIC ACID
  3. DIGOXIN. [Concomitant]
     Active Substance: DIGOXIN
  4. FERROUS FUMARATE [Concomitant]
     Active Substance: FERROUS FUMARATE
  5. ISOSORBIDE. [Concomitant]
     Active Substance: ISOSORBIDE
  6. METFORMIN [Concomitant]
     Active Substance: METFORMIN HYDROCHLORIDE
  7. RISPERIDONE. [Concomitant]
     Active Substance: RISPERIDONE
     Indication: AGITATION
  8. SIMVASTATIN. [Concomitant]
     Active Substance: SIMVASTATIN
  9. BECLOMETASONE [Concomitant]
     Active Substance: BECLOMETHASONE DIPROPIONATE
  10. BISOPROLOL [Concomitant]
     Active Substance: BISOPROLOL
  11. LORATADINE. [Concomitant]
     Active Substance: LORATADINE
  12. MENTHOL. [Concomitant]
     Active Substance: MENTHOL
  13. TRAZODONE [Suspect]
     Active Substance: TRAZODONE HYDROCHLORIDE
     Dosage: 50 MG, UNK
     Route: 048
  14. DOCUSATE [Concomitant]
     Active Substance: DOCUSATE
  15. SALBUTAMOL [Concomitant]
     Active Substance: ALBUTEROL
  16. COLECALCIFEROL [Concomitant]
     Active Substance: CHOLECALCIFEROL
  17. GABAPENTIN. [Concomitant]
     Active Substance: GABAPENTIN
  18. ZOPICLON [Concomitant]
     Active Substance: ZOPICLONE

REACTIONS (5)
  - Rash erythematous [Recovering/Resolving]
  - Formication [Unknown]
  - Pruritus [Unknown]
  - Death [Fatal]
  - Paraesthesia [Unknown]

NARRATIVE: CASE EVENT DATE: 20170601
